FAERS Safety Report 6174137-3 (Version None)
Quarter: 2009Q2

REPORT INFORMATION
  Report Type: 
  Country: None (occurrence: None)
  Receive Date: 20090430
  Receipt Date: 20090428
  Transmission Date: 20091009
  Serious: Yes (Hospitalization)
  Sender: FDA-Public Use
  Company Number: US-B.I. PHARMACEUTICALS,INC./RIDGEFIELD-2009-BP-05301BP

PATIENT
  Sex: Male
  Weight: 78.9 kg

DRUGS (3)
  1. MICARDIS [Suspect]
     Indication: CONGENITAL CYSTIC KIDNEY DISEASE
     Route: 048
     Dates: end: 20090420
  2. PLACEBO (BLIND) [Suspect]
     Indication: CONGENITAL CYSTIC KIDNEY DISEASE
     Route: 048
     Dates: end: 20090420
  3. LISINOPRIL [Suspect]
     Indication: HYPERTENSION
     Dosage: 2.5MG
     Route: 048

REACTIONS (1)
  - HYPOTENSION [None]
